FAERS Safety Report 13780935 (Version 1)
Quarter: 2017Q3

REPORT INFORMATION
  Report Type: Spontaneous
  Country: US (occurrence: US)
  Receive Date: 20170724
  Receipt Date: 20170724
  Transmission Date: 20171127
  Serious: Yes (Other)
  Sender: FDA-Public Use
  Company Number: US-ACCORD-055994

PATIENT
  Age: 82 Year
  Sex: Female

DRUGS (1)
  1. METHOTREXATE. [Suspect]
     Active Substance: METHOTREXATE
     Indication: PSORIASIS

REACTIONS (3)
  - B-cell lymphoma [Recovered/Resolved with Sequelae]
  - Epstein-Barr virus infection [Recovered/Resolved with Sequelae]
  - Lymphoproliferative disorder [Recovered/Resolved with Sequelae]
